FAERS Safety Report 7145709-4 (Version None)
Quarter: 2010Q4

REPORT INFORMATION
  Report Type: 
  Country: None (occurrence: None)
  Receive Date: 20101123
  Receipt Date: 20101109
  Transmission Date: 20110411
  Serious: Yes (Hospitalization, Other)
  Sender: FDA-Public Use
  Company Number: JPI-P-012962

PATIENT
  Age: 69 Year
  Sex: Male
  Weight: 102.5129 kg

DRUGS (15)
  1. XYREM [Suspect]
     Indication: CATAPLEXY
     Dosage: ORAL ; 9 GM (4.5 GM,2 IN 1 D),ORAL
     Route: 048
     Dates: start: 20030116
  2. FUROSEMIDE [Concomitant]
  3. AMPHETAMINE AND DEXTROAMPHETAMINE [Concomitant]
  4. CLOMIPRAMINE HCL [Concomitant]
  5. AZATHIOPRINE [Concomitant]
  6. FAMOTIDINE [Concomitant]
  7. FERROUS SULFATE [Concomitant]
  8. LISINOPRIL [Concomitant]
  9. METOPROLOL TARTRATE [Concomitant]
  10. PREDNISONE [Concomitant]
  11. SPIRONOLACTONE [Concomitant]
  12. TERAZOSIN HCL [Concomitant]
  13. INSULIN GLARGINE [Concomitant]
  14. TRAMADOL HCL [Concomitant]
  15. ACETAMINOPHEN [Concomitant]

REACTIONS (1)
  - MYOCARDIAL INFARCTION [None]
